FAERS Safety Report 17140622 (Version 2)
Quarter: 2019Q4

REPORT INFORMATION
  Report Type: Report from Study
  Country: US (occurrence: US)
  Receive Date: 20191211
  Receipt Date: 20191216
  Transmission Date: 20200122
  Serious: Yes (Hospitalization, Other)
  Sender: FDA-Public Use
  Company Number: US-GILEAD-2019-0439237

PATIENT
  Age: 27 Year
  Sex: Male

DRUGS (2)
  1. AMBRISENTAN [Suspect]
     Active Substance: AMBRISENTAN
     Indication: PRODUCT USED FOR UNKNOWN INDICATION
     Dosage: 5 MG, QD
     Route: 065
     Dates: start: 2019
  2. AMBRISENTAN [Suspect]
     Active Substance: AMBRISENTAN
     Dosage: 15 UNK
     Route: 065

REACTIONS (1)
  - Pulmonary arterial hypertension [Unknown]
